FAERS Safety Report 8798021 (Version 2)
Quarter: 2012Q4

REPORT INFORMATION
  Report Type: Spontaneous
  Country: US (occurrence: None)
  Receive Date: 20120918
  Receipt Date: 20120925
  Transmission Date: 20130627
  Serious: Yes (Other)
  Sender: FDA-Public Use
  Company Number: 2012033265

PATIENT
  Sex: Female
  Weight: 88.45 kg

DRUGS (5)
  1. PRIVIGEN (IMMUNE GLOBULIN INTRAVENOUS (HUMAN) 10% LIQUID) [Suspect]
     Indication: IMMUNODEFICIENCY COMMON VARIABLE
     Dosage: (received 20 gm only; switched to Hizentra)
     Route: 042
     Dates: start: 20120622, end: 20120622
  2. PRIVIGEN (IMMUNE GLOBULIN INTRAVENOUS (HUMAN) 10% LIQUID) [Suspect]
     Indication: IMMUNODEFICIENCY COMMON VARIABLE
     Dosage: (second Privigen dose; switched to Hizentra)
     Route: 042
  3. HERBAL PRODUCTS [Concomitant]
  4. VITAMIN B12 (CYANOCOBALAMIN) [Concomitant]
  5. VITAMIN D/CALCIUM (CALCIUM WITH VITAMIN D) [Concomitant]

REACTIONS (11)
  - Infusion related reaction [None]
  - Chest discomfort [None]
  - Sensation of pressure [None]
  - Feeling abnormal [None]
  - Malaise [None]
  - Depression [None]
  - Eczema [None]
  - Heart rate abnormal [None]
  - Depressed mood [None]
  - Extrasystoles [None]
  - Cardiac flutter [None]
